FAERS Safety Report 10203064 (Version 1)
Quarter: 2014Q2

REPORT INFORMATION
  Report Type: Report from Study
  Country: RS (occurrence: RS)
  Receive Date: 20140529
  Receipt Date: 20140529
  Transmission Date: 20141212
  Serious: Yes (Other)
  Sender: FDA-Public Use
  Company Number: RS-ROCHE-1409385

PATIENT
  Age: 54 Year
  Sex: Female
  Weight: 85 kg

DRUGS (1)
  1. TRASTUZUMAB [Suspect]
     Indication: BREAST CANCER
     Route: 065
     Dates: start: 20071115, end: 20080521

REACTIONS (1)
  - Disease progression [Unknown]
